FAERS Safety Report 8558361-8 (Version None)
Quarter: 2012Q3

REPORT INFORMATION
  Report Type: 
  Country: None (occurrence: None)
  Receive Date: 20120801
  Receipt Date: 20120720
  Transmission Date: 20120928
  Serious: Yes (Hospitalization)
  Sender: FDA-Public Use
  Company Number: ZA-ELI_LILLY_AND_COMPANY-ZA201207006916

PATIENT
  Sex: Female

DRUGS (13)
  1. SPIRACTIN                          /00006201/ [Concomitant]
     Dosage: 25 MG, QD
     Route: 048
     Dates: start: 20120406
  2. OMEZ                               /00661201/ [Concomitant]
     Dosage: 1 DF, QD
     Route: 048
     Dates: start: 20120401
  3. ENAP [Concomitant]
     Indication: HYPERTENSION
     Dosage: 5 MG, BID
     Route: 048
     Dates: start: 20120406
  4. LIPOGEN [Suspect]
     Indication: BLOOD CHOLESTEROL INCREASED
     Dosage: 10 MG, EACH EVENING
     Route: 048
     Dates: start: 20120406
  5. PURICOS [Concomitant]
     Indication: GOUT
     Dosage: 100 MG, QD
     Route: 048
     Dates: start: 20120406
  6. LANTUS [Concomitant]
     Indication: DIABETES MELLITUS
     Dosage: 18 IU, EACH EVENING
     Route: 058
     Dates: start: 20120201
  7. VITAMIN B COMPLEX CAP [Concomitant]
     Dosage: 2 DF, QD
     Route: 048
     Dates: start: 20120406
  8. CONTROMET [Concomitant]
     Indication: VERTIGO
     Dosage: 1 DF, TID
     Route: 048
     Dates: start: 20120406
  9. WARFARIN [Concomitant]
     Dosage: 5 MG, PRN
     Route: 048
     Dates: start: 20120406
  10. CALCIFEROL [Concomitant]
     Dosage: 5000 IU, SINGLE
     Route: 048
     Dates: start: 20120406, end: 20120406
  11. HUMALOG [Suspect]
     Indication: DIABETES MELLITUS
     Dosage: 6 U, TID
     Route: 058
     Dates: start: 20120201
  12. CARLOC [Concomitant]
     Indication: HYPERTENSION
     Dosage: 6.25 MG, BID
     Route: 048
     Dates: start: 20120406
  13. PURESIS [Concomitant]
     Dosage: .5 DF, QD
     Route: 048
     Dates: start: 20120406

REACTIONS (1)
  - CUSHING'S SYNDROME [None]
